FAERS Safety Report 22635918 (Version 1)
Quarter: 2023Q2

REPORT INFORMATION
  Report Type: Spontaneous
  Country: FR (occurrence: FR)
  Receive Date: 20230623
  Receipt Date: 20230623
  Transmission Date: 20230722
  Serious: Yes (Hospitalization)
  Sender: FDA-Public Use
  Company Number: None

PATIENT
  Age: 28 Year
  Sex: Female
  Weight: 70 kg

DRUGS (5)
  1. VERAPAMIL [Suspect]
     Active Substance: VERAPAMIL HYDROCHLORIDE
     Indication: Cluster headache
     Dosage: 40 MILLIGRAM, Q8H
     Route: 048
     Dates: start: 20230428, end: 20230514
  2. SUMATRIPTAN SUCCINATE [Suspect]
     Active Substance: SUMATRIPTAN SUCCINATE
     Indication: Cluster headache
     Dosage: 6 MILLIGRAM (30 INJECTIONS/MONTH)
     Route: 058
     Dates: start: 2018, end: 20230331
  3. OXYGEN [Suspect]
     Active Substance: OXYGEN
     Indication: Cluster headache
     Dosage: 10 LITER
     Route: 065
     Dates: start: 20230331, end: 20230414
  4. OXYGEN [Suspect]
     Active Substance: OXYGEN
     Dosage: 15 LITER
     Route: 065
     Dates: start: 20230414
  5. AMITRIPTYLINE HYDROCHLORIDE [Suspect]
     Active Substance: AMITRIPTYLINE HYDROCHLORIDE
     Indication: Cluster headache
     Dosage: 21 DROPS, QD
     Route: 048
     Dates: end: 20230414

REACTIONS (2)
  - Eclampsia [Recovering/Resolving]
  - Maternal exposure during pregnancy [Unknown]

NARRATIVE: CASE EVENT DATE: 20230524
